FAERS Safety Report 24055767 (Version 4)
Quarter: 2024Q3

REPORT INFORMATION
  Report Type: Spontaneous
  Country: US (occurrence: US)
  Receive Date: 20240705
  Receipt Date: 20240731
  Transmission Date: 20241017
  Serious: No
  Sender: BAYER
  Company Number: US-BAYER-2024A095357

PATIENT
  Sex: Female

DRUGS (1)
  1. CLIMARA [Suspect]
     Active Substance: ESTRADIOL
     Dosage: 37.5 ?G, QD
     Route: 062
     Dates: start: 202405

REACTIONS (3)
  - Menopausal symptoms [None]
  - Drug ineffective [None]
  - Device adhesion issue [None]
